FAERS Safety Report 9269781 (Version 1)
Quarter: 2013Q2

REPORT INFORMATION
  Report Type: Spontaneous
  Country: US (occurrence: US)
  Receive Date: 20130503
  Receipt Date: 20130503
  Transmission Date: 20140414
  Serious: No
  Sender: FDA-Public Use
  Company Number: US-BAYER-2013-054487

PATIENT
  Age: 83 Year
  Sex: Female
  Weight: 49.89 kg

DRUGS (2)
  1. ALEVE CAPLET [Suspect]
     Dosage: 1 DF, QD
     Route: 048
     Dates: start: 20130420, end: 20130423
  2. ALEVE TABLET [Suspect]

REACTIONS (1)
  - Rash macular [Not Recovered/Not Resolved]
